FAERS Safety Report 14952389 (Version 3)
Quarter: 2018Q2

REPORT INFORMATION
  Report Type: Spontaneous
  Country: US (occurrence: US)
  Receive Date: 20180530
  Receipt Date: 20180625
  Transmission Date: 20180711
  Serious: No
  Sender: FDA-Public Use
  Company Number: US-PFIZER INC-2018213334

PATIENT
  Age: 79 Year
  Sex: Female
  Weight: 93 kg

DRUGS (3)
  1. IBRANCE [Suspect]
     Active Substance: PALBOCICLIB
     Dosage: 125 MG, CYCLIC [D 1-21 Q 28 DAYS]
     Route: 048
     Dates: start: 20180502, end: 2018
  2. IBRANCE [Suspect]
     Active Substance: PALBOCICLIB
     Indication: BREAST CANCER METASTATIC
     Dosage: 125 MG, CYCLIC [D 1-21 Q 28DAYS]
     Route: 048
     Dates: start: 20180502, end: 2018
  3. IBRANCE [Suspect]
     Active Substance: PALBOCICLIB
     Dosage: 125 MG, CYCLIC [D 1-21 Q 28 DAYS]
     Route: 048
     Dates: start: 20180502, end: 201806

REACTIONS (6)
  - White blood cell count decreased [Unknown]
  - Peripheral swelling [Recovered/Resolved]
  - Pain [Unknown]
  - Drug hypersensitivity [Unknown]
  - Tremor [Recovered/Resolved]
  - Full blood count decreased [Unknown]

NARRATIVE: CASE EVENT DATE: 2018
